FAERS Safety Report 7633580-3 (Version None)
Quarter: 2011Q3

REPORT INFORMATION
  Report Type: 
  Country: None (occurrence: None)
  Receive Date: 20110725
  Receipt Date: 20110705
  Transmission Date: 20111222
  Serious: Yes (Hospitalization)
  Sender: FDA-Public Use
  Company Number: US-GLAXOSMITHKLINE-A0873107A

PATIENT
  Age: 56 Year
  Sex: Male

DRUGS (6)
  1. GLYBURIDE [Concomitant]
  2. METFORMIN HCL [Concomitant]
  3. VYTORIN [Concomitant]
  4. ATENOLOL [Concomitant]
  5. AVANDIA [Suspect]
     Indication: DIABETES MELLITUS
     Dosage: 8MG PER DAY
     Route: 048
     Dates: start: 20060201, end: 20070101
  6. ZESTRIL [Concomitant]

REACTIONS (3)
  - VASCULAR GRAFT OCCLUSION [None]
  - AORTIC STENOSIS [None]
  - STENT PLACEMENT [None]
